FAERS Safety Report 8964353 (Version 1)
Quarter: 2012Q4

REPORT INFORMATION
  Report Type: Report from Study
  Country: GB (occurrence: GB)
  Receive Date: 20121214
  Receipt Date: 20121214
  Transmission Date: 20130627
  Serious: Yes (Hospitalization)
  Sender: FDA-Public Use
  Company Number: GB-PFIZER INC-GB-WYE-H09825509

PATIENT
  Age: 43 Year
  Sex: Female

DRUGS (37)
  1. RAPAMUNE [Suspect]
     Indication: PROPHYLAXIS AGAINST RENAL TRANSPLANT REJECTION
     Dosage: 4 mg, 1x/day
     Route: 048
     Dates: start: 20030524, end: 20030703
  2. RAPAMUNE [Suspect]
     Dosage: 6 mg, 1x/day
     Route: 065
     Dates: start: 20030709, end: 20030722
  3. PREDNISOLONE [Suspect]
     Indication: PROPHYLAXIS AGAINST RENAL TRANSPLANT REJECTION
     Dosage: 5 mg, 1x/day
     Route: 048
     Dates: start: 20030709
  4. PREDNISOLONE [Suspect]
     Dosage: 15 mg, 1x/day
     Route: 048
     Dates: start: 20030524, end: 20030703
  5. METHYLPREDNISOLONE [Suspect]
     Indication: PROPHYLAXIS AGAINST RENAL TRANSPLANT REJECTION
     Dosage: 500 mg, 1x/day
     Route: 042
     Dates: start: 20030524, end: 20030706
  6. METHYLPREDNISOLONE [Suspect]
     Dosage: 500 mg, 1x/day
     Route: 042
     Dates: start: 20030715, end: 20030718
  7. DOXAZOSIN MESILATE [Suspect]
     Dosage: 4.0 mg, 1x/day
     Route: 048
     Dates: start: 20030607, end: 20030801
  8. TACROLIMUS [Suspect]
     Indication: PROPHYLAXIS AGAINST RENAL TRANSPLANT REJECTION
     Dosage: 3.5 mg, 2x/day
     Route: 048
     Dates: start: 20030722
  9. DACLIZUMAB [Suspect]
     Indication: PROPHYLAXIS AGAINST RENAL TRANSPLANT REJECTION
     Dosage: 160 mg, single
     Route: 042
     Dates: start: 20030524
  10. DACLIZUMAB [Suspect]
     Dosage: 80 mg, every 2 weeks
     Dates: start: 20030606, end: 20030719
  11. MYCOPHENOLATE MOFETIL [Suspect]
     Indication: PROPHYLAXIS AGAINST RENAL TRANSPLANT REJECTION
     Dosage: 1 g, 2x/day
     Route: 048
     Dates: start: 20030525
  12. MYCOPHENOLATE MOFETIL [Suspect]
     Dosage: 500 mg, 2x/day
     Route: 048
     Dates: start: 20030820
  13. ASPIRIN [Concomitant]
     Dosage: 75 mg, 1x/day
     Route: 065
     Dates: start: 20030524
  14. AUGMENTIN [Concomitant]
     Dosage: 1.2 g, 1x/day
     Route: 042
     Dates: start: 20030524, end: 20030530
  15. AUGMENTIN [Concomitant]
     Dosage: 625 mg, 1x/day
     Route: 048
     Dates: start: 20030531, end: 20030605
  16. ATENOLOL [Concomitant]
     Dosage: 25 mg, 1x/day
     Route: 048
     Dates: start: 20030524, end: 20030811
  17. ATENOLOL [Concomitant]
     Dosage: 50 mg, 1x/day
     Route: 048
     Dates: start: 20030812
  18. ATENOLOL [Concomitant]
     Dosage: 25 mg, 1x/day
     Route: 048
     Dates: start: 20031208
  19. CALCICHEW [Concomitant]
     Dosage: 2 DF, 2x/day
     Route: 048
     Dates: start: 20030617
  20. CALCICHEW [Concomitant]
     Dosage: 1 DF, 2x/day
     Route: 048
     Dates: start: 20030703, end: 20030709
  21. CIPROFLOXACIN [Concomitant]
     Dosage: 500 mg, 2x/day
     Route: 048
     Dates: start: 20030602, end: 20030924
  22. DOPAMINE HYDROCHLORIDE [Concomitant]
     Dosage: 240 mg, single
     Route: 042
     Dates: start: 20030525
  23. FUROSEMIDE [Concomitant]
     Dosage: 500 mg, single
     Route: 042
     Dates: start: 20030525, end: 2003
  24. FUROSEMIDE [Concomitant]
     Dosage: 160 mg, single
     Route: 042
     Dates: start: 20030525
  25. FUROSEMIDE [Concomitant]
     Dosage: 80 mg, single
     Route: 042
     Dates: start: 20030525
  26. FUROSEMIDE [Concomitant]
     Dosage: 40 mg, single
     Route: 042
     Dates: start: 20030526
  27. FUROSEMIDE [Concomitant]
     Dosage: 40 mg, 1x/day
     Route: 048
     Dates: start: 20030617
  28. GANCICLOVIR [Concomitant]
     Dosage: 500 mg, 1x/day
     Route: 048
     Dates: start: 20030529
  29. GANCICLOVIR [Concomitant]
     Dosage: 1.5 g, 1x/day
     Route: 048
     Dates: start: 20030602
  30. CLEXANE [Concomitant]
     Dosage: 20 mg, 1x/day
     Route: 058
     Dates: start: 20030529, end: 20030608
  31. LOSARTAN POTASSIUM [Concomitant]
     Dosage: 50 mg, 1x/day
     Route: 048
     Dates: start: 20030707
  32. OMEPRAZOLE [Concomitant]
     Dosage: 20 mg, 1x/day
     Route: 048
     Dates: start: 20030525
  33. PARACETAMOL [Concomitant]
     Dosage: 4 g, 4x/day
     Route: 048
     Dates: start: 20030525
  34. SLOW-K [Concomitant]
     Dosage: 1.2 g, 3x/day
     Route: 048
     Dates: start: 20030530
  35. SIMVASTATIN [Concomitant]
     Dosage: 10 mg, 1x/day
     Route: 065
     Dates: start: 2002
  36. SPIRONOLACTONE [Concomitant]
     Dosage: 25 mg, 2x/day
     Route: 048
     Dates: start: 20030630
  37. COTRIMOXAZOL [Concomitant]
     Dosage: 480 mg, 1x/day
     Route: 048
     Dates: start: 20030524

REACTIONS (4)
  - Hypertension [Recovered/Resolved]
  - Oedema [Recovered/Resolved]
  - Renal artery stenosis [Recovered/Resolved]
  - Migraine [Recovered/Resolved]
